FAERS Safety Report 9136535 (Version 1)
Quarter: 2013Q1

REPORT INFORMATION
  Report Type: Spontaneous
  Country: US (occurrence: US)
  Receive Date: 20130304
  Receipt Date: 20130304
  Transmission Date: 20140127
  Serious: No
  Sender: FDA-Public Use
  Company Number: US-ABBOTT-12P-163-0912426-00

PATIENT
  Age: 69 Year
  Sex: Female
  Weight: 100.79 kg

DRUGS (5)
  1. ANDROGEL 1% [Suspect]
     Indication: ACCIDENTAL EXPOSURE TO PRODUCT
     Route: 062
  2. LITHIUM [Concomitant]
     Indication: MOOD ALTERED
  3. LITHIUM [Concomitant]
     Indication: DIZZINESS
  4. LATUDA [Concomitant]
     Indication: MOOD ALTERED
  5. LATUDA [Concomitant]
     Indication: DIZZINESS

REACTIONS (4)
  - Accidental exposure to product [Not Recovered/Not Resolved]
  - Hair growth abnormal [Not Recovered/Not Resolved]
  - Arthralgia [Not Recovered/Not Resolved]
  - Rash macular [Not Recovered/Not Resolved]
